FAERS Safety Report 7259492-5 (Version None)
Quarter: 2011Q1

REPORT INFORMATION
  Report Type: 
  Country: None (occurrence: None)
  Receive Date: 20110130
  Receipt Date: 20101105
  Transmission Date: 20110831
  Serious: No
  Sender: FDA-Public Use
  Company Number: PR-ABBOTT-10P-131-0679089-00

PATIENT
  Sex: Female
  Weight: 69.008 kg

DRUGS (7)
  1. FML [Concomitant]
     Indication: GLAUCOMA
     Route: 047
  2. HYDROCHLOROTHIAZIDE [Concomitant]
     Indication: HYPERTENSION
     Route: 048
  3. HUMIRA [Suspect]
     Indication: RHEUMATOID ARTHRITIS
     Route: 058
     Dates: start: 20090901
  4. TOPROL-XL [Concomitant]
     Indication: HYPERTENSION
     Route: 048
  5. XALATAN [Concomitant]
     Indication: GLAUCOMA
     Route: 047
  6. AVAPRO [Concomitant]
     Indication: HYPERTENSION
     Route: 048
  7. HUMIRA [Suspect]
     Indication: PSORIASIS

REACTIONS (2)
  - SINUSITIS [None]
  - FATIGUE [None]
